FAERS Safety Report 20700785 (Version 1)
Quarter: 2022Q2

REPORT INFORMATION
  Report Type: Spontaneous
  Country: US (occurrence: None)
  Receive Date: 20220411
  Receipt Date: 20220411
  Transmission Date: 20220721
  Serious: Yes (Other)
  Sender: FDA-Public Use
  Company Number: None

PATIENT
  Age: 68 Year
  Sex: Female
  Weight: 69.85 kg

DRUGS (6)
  1. LAMICTAL [Suspect]
     Active Substance: LAMOTRIGINE
     Indication: Affective disorder
     Dosage: OTHER QUANTITY : 3 PILLS;?FREQUENCY : AT BEDTIME;?
     Route: 048
     Dates: start: 2007, end: 2017
  2. LEVOTHYROXINE [Concomitant]
     Active Substance: LEVOTHYROXINE
  3. CLONAZEPAM [Concomitant]
     Active Substance: CLONAZEPAM
  4. LAMICTAL [Concomitant]
     Active Substance: LAMOTRIGINE
  5. ASPIRIN [Concomitant]
     Active Substance: ASPIRIN
  6. VITAMIN D [Concomitant]
     Active Substance: VITAMIN D NOS

REACTIONS (4)
  - Dysphemia [None]
  - Repetitive speech [None]
  - Aphasia [None]
  - Speech disorder [None]
